FAERS Safety Report 6607863-X (Version None)
Quarter: 2010Q1

REPORT INFORMATION
  Report Type: 
  Country: None (occurrence: None)
  Receive Date: 20100222
  Receipt Date: 20100205
  Transmission Date: 20100710
  Serious: Yes (Hospitalization)
  Sender: FDA-Public Use
  Company Number: US-JNJFOC-20100108303

PATIENT
  Age: 70 Year
  Sex: Female
  Weight: 56.2 kg

DRUGS (3)
  1. DECITABINE (DECITABINE) LYOPHILIZED POWDER [Suspect]
     Indication: ACUTE MYELOID LEUKAEMIA
     Dosage: 120 MG/M2, INTRAVENOUS
     Route: 042
     Dates: start: 20091218, end: 20091221
  2. DECITABINE (DECITABINE) LYOPHILIZED POWDER [Suspect]
     Indication: ACUTE MYELOID LEUKAEMIA
     Dosage: 120 MG/M2, INTRAVENOUS
     Route: 042
     Dates: start: 20100120, end: 20100123
  3. DECITABINE (DECITABINE) LYOPHILIZED POWDER [Suspect]
     Indication: ACUTE MYELOID LEUKAEMIA
     Dosage: 120 MG/M2, INTRAVENOUS
     Route: 042
     Dates: start: 20090324

REACTIONS (11)
  - CARDIAC VALVE VEGETATION [None]
  - CEREBRAL ISCHAEMIA [None]
  - DEVICE RELATED INFECTION [None]
  - DIZZINESS [None]
  - DYSARTHRIA [None]
  - ENDOCARDITIS [None]
  - FALL [None]
  - FEBRILE NEUTROPENIA [None]
  - INFLUENZA LIKE ILLNESS [None]
  - LETHARGY [None]
  - STAPHYLOCOCCAL INFECTION [None]
